FAERS Safety Report 20044757 (Version 1)
Quarter: 2021Q4

REPORT INFORMATION
  Report Type: Spontaneous
  Country: FR (occurrence: FR)
  Receive Date: 20211108
  Receipt Date: 20211108
  Transmission Date: 20220303
  Serious: Yes (Hospitalization)
  Sender: FDA-Public Use
  Company Number: None

PATIENT
  Age: 63 Year
  Sex: Female
  Weight: 79 kg

DRUGS (5)
  1. LINEZOLID [Suspect]
     Active Substance: LINEZOLID
     Indication: Antibiotic prophylaxis
     Dosage: UNK
     Route: 042
     Dates: start: 20201222, end: 20210108
  2. LINEZOLID [Suspect]
     Active Substance: LINEZOLID
     Indication: Antibiotic prophylaxis
     Dosage: UNK
     Route: 048
     Dates: start: 20210108, end: 20210119
  3. BACTRIM [Suspect]
     Active Substance: SULFAMETHOXAZOLE\TRIMETHOPRIM
     Indication: Antibiotic prophylaxis
     Dosage: UNK
     Route: 042
     Dates: start: 20210106, end: 20210107
  4. LEVOFLOXACIN [Suspect]
     Active Substance: LEVOFLOXACIN
     Indication: Antibiotic prophylaxis
     Dosage: 1 DF, 3X/DAY
     Route: 048
     Dates: start: 20210106, end: 20210107
  5. AZACTAM [Suspect]
     Active Substance: AZTREONAM
     Indication: Antibiotic prophylaxis
     Dosage: 2 G, 3X/DAY
     Route: 042
     Dates: start: 20201230, end: 20210106

REACTIONS (2)
  - Rash pruritic [Recovering/Resolving]
  - Face oedema [Recovered/Resolved]

NARRATIVE: CASE EVENT DATE: 20210108
